FAERS Safety Report 13573727 (Version 1)
Quarter: 2017Q2

REPORT INFORMATION
  Report Type: Spontaneous
  Country: CA (occurrence: CA)
  Receive Date: 20170523
  Receipt Date: 20170523
  Transmission Date: 20170830
  Serious: Yes (Hospitalization, Disabling)
  Sender: FDA-Public Use
  Company Number: None

PATIENT
  Age: 37 Year
  Sex: Male
  Weight: 61.29 kg

DRUGS (10)
  1. RABEPRAZOLE SODIUM. [Suspect]
     Active Substance: RABEPRAZOLE SODIUM
     Route: 048
     Dates: start: 20170324, end: 20170325
  2. CAL-MAGNESIUM [Concomitant]
  3. DOMPERIDONE MALEATE [Suspect]
     Active Substance: DOMPERIDONE MALEATE
     Indication: DYSPEPSIA
     Route: 048
     Dates: start: 20170324, end: 20170325
  4. SUN CHLORELLA [Concomitant]
     Active Substance: DIETARY SUPPLEMENT
  5. DOMPERIDONE MALEATE [Suspect]
     Active Substance: DOMPERIDONE MALEATE
     Indication: HYPERCHLORHYDRIA
     Route: 048
     Dates: start: 20170324, end: 20170325
  6. MEDICAL MARIJUANA [Concomitant]
     Active Substance: CANNABIS SATIVA SUBSP. INDICA TOP
  7. COD LIVER OIL [Concomitant]
     Active Substance: COD LIVER OIL
  8. VITAMIN D [Concomitant]
     Active Substance: CHOLECALCIFEROL
  9. NOVOLIN [Concomitant]
     Active Substance: INSULIN HUMAN
  10. PREGABALIN. [Concomitant]
     Active Substance: PREGABALIN

REACTIONS (4)
  - Tongue biting [None]
  - Dizziness [None]
  - Reduced facial expression [None]
  - Mobility decreased [None]

NARRATIVE: CASE EVENT DATE: 20170324
